FAERS Safety Report 21505358 (Version 1)
Quarter: 2022Q4

REPORT INFORMATION
  Report Type: Spontaneous
  Country: US (occurrence: US)
  Receive Date: 20221026
  Receipt Date: 20221026
  Transmission Date: 20230113
  Serious: Yes (Hospitalization)
  Sender: FDA-Public Use
  Company Number: US-HETERO-HET2022US02619

PATIENT
  Age: 73 Year
  Sex: Male

DRUGS (1)
  1. HYDRALAZINE [Suspect]
     Active Substance: HYDRALAZINE HYDROCHLORIDE
     Indication: Hypertension
     Dosage: 100 MG, BID
     Route: 065

REACTIONS (2)
  - Lupus-like syndrome [Recovering/Resolving]
  - Pulmonary alveolar haemorrhage [Recovered/Resolved]
